FAERS Safety Report 11107470 (Version 1)
Quarter: 2015Q2

REPORT INFORMATION
  Report Type: Spontaneous
  Country: US (occurrence: US)
  Receive Date: 20150512
  Receipt Date: 20150512
  Transmission Date: 20150821
  Serious: No
  Sender: FDA-Public Use
  Company Number: US-BAYER-2015-195459

PATIENT
  Age: 25 Year
  Sex: Female
  Weight: 54 kg

DRUGS (2)
  1. ALEVE [Suspect]
     Active Substance: NAPROXEN SODIUM
     Indication: MIGRAINE
     Dosage: 1 CAPLET
     Dates: start: 201503
  2. ALEVE [Suspect]
     Active Substance: NAPROXEN SODIUM
     Indication: DYSMENORRHOEA

REACTIONS (1)
  - Therapeutic response unexpected [Unknown]
